FAERS Safety Report 9106116 (Version 2)
Quarter: 2013Q1

REPORT INFORMATION
  Report Type: Spontaneous
  Country: GB (occurrence: GB)
  Receive Date: 20130221
  Receipt Date: 20130305
  Transmission Date: 20140127
  Serious: Yes (Death)
  Sender: FDA-Public Use
  Company Number: PHFR2013GB001312

PATIENT
  Age: 69 Year
  Sex: Female

DRUGS (5)
  1. CLOZARIL [Suspect]
     Indication: SCHIZOPHRENIA
     Dosage: UNK
     Route: 048
     Dates: start: 20091130
  2. MADOPAR DISPERSIBLE [Concomitant]
     Indication: PARKINSON^S DISEASE
     Dosage: 125 MG, UNK
     Route: 048
  3. SINEMET [Concomitant]
     Indication: PARKINSON^S DISEASE
     Dosage: 125 MG, UNK
     Route: 048
  4. SINEMET-CR [Concomitant]
     Indication: PARKINSON^S DISEASE
     Dosage: 125 MG, BID
     Route: 048
  5. ROTIGOTINE [Concomitant]
     Indication: PARKINSON^S DISEASE
     Dosage: 6 MG, UNK

REACTIONS (1)
  - Death [Fatal]
